FAERS Safety Report 5884212-6 (Version None)
Quarter: 2008Q3

REPORT INFORMATION
  Report Type: 
  Country: None (occurrence: None)
  Receive Date: 20080911
  Receipt Date: 20080829
  Transmission Date: 20090109
  Serious: Yes (Hospitalization)
  Sender: FDA-Public Use
  Company Number: 2008002172

PATIENT
  Sex: Female

DRUGS (10)
  1. TARCEVA [Suspect]
     Indication: NON-SMALL CELL LUNG CANCER
     Dosage: (150 MG, QD), ORAL
     Route: 048
     Dates: start: 20060528
  2. PLAVIX [Concomitant]
  3. LIPITOR [Concomitant]
  4. NITROGLYCERIN [Concomitant]
  5. NEXIUM [Concomitant]
  6. SINGULAIR [Concomitant]
  7. LYRICA [Concomitant]
  8. ZOPONAX [Concomitant]
  9. ZOLAIR [Concomitant]
  10. PROVENTIL [Concomitant]

REACTIONS (7)
  - ARTERIAL OCCLUSIVE DISEASE [None]
  - CARDIOSPASM [None]
  - CORONARY ARTERY DISEASE [None]
  - DRY SKIN [None]
  - ONYCHOCLASIS [None]
  - PAIN IN EXTREMITY [None]
  - RASH [None]
